FAERS Safety Report 8803324 (Version 2)
Quarter: 2012Q4

REPORT INFORMATION
  Report Type: 
  Country: US (occurrence: US)
  Receive Date: 20120924
  Receipt Date: 20121022
  Transmission Date: 20130627
  Serious: Yes (Hospitalization)
  Sender: FDA-Public Use
  Company Number: US-BAYER-2012-098035

PATIENT
  Age: 32 Year
  Sex: Female
  Weight: 140.59 kg

DRUGS (14)
  1. YAZ [Suspect]
  2. YASMIN [Suspect]
  3. OCELLA [Suspect]
  4. DARVOCET [Concomitant]
  5. ALBUTEROL [Concomitant]
  6. LIPITOR [Concomitant]
  7. ATENOLOL [Concomitant]
  8. LOPID [Concomitant]
     Indication: PANCREATITIS
  9. CIPROFLOXACIN HCL [Concomitant]
  10. METRONIDAZOLE [Concomitant]
  11. HYDROCODONE W/ACETAMINOPHEN [Concomitant]
  12. PROPOXYPHENE NAPSYLATE W/PARACETAMOL [Concomitant]
  13. ACETAMINOPHEN W/CODEINE [Concomitant]
  14. CEPHALEXIN [Concomitant]

REACTIONS (2)
  - Injury [None]
  - Pulmonary embolism [None]
